FAERS Safety Report 4297447-3 (Version None)
Quarter: 2004Q1

REPORT INFORMATION
  Report Type: 
  Country: None (occurrence: None)
  Receive Date: 20040218
  Receipt Date: 20040216
  Transmission Date: 20041129
  Serious: Yes (Other)
  Sender: FDA-Public Use
  Company Number: GB-ROCHE-358957

PATIENT
  Age: 32 Year
  Sex: Female
  Weight: 65 kg

DRUGS (4)
  1. ACITRETIN [Suspect]
     Indication: PSORIASIS
     Route: 048
     Dates: start: 20040106
  2. ACITRETIN [Suspect]
     Route: 048
     Dates: start: 20040119
  3. THYROXINE [Concomitant]
     Indication: HYPOTHYROIDISM
     Route: 048
     Dates: start: 19960615
  4. FLUOXETINE [Concomitant]
     Indication: DEPRESSION
     Route: 048
     Dates: start: 19970615

REACTIONS (5)
  - BENIGN INTRACRANIAL HYPERTENSION [None]
  - BLISTER [None]
  - FACE OEDEMA [None]
  - HEADACHE [None]
  - VOMITING [None]
